FAERS Safety Report 4340768-6 (Version None)
Quarter: 2004Q2

REPORT INFORMATION
  Report Type: 
  Country: None (occurrence: None)
  Receive Date: 20040419
  Receipt Date: 20040413
  Transmission Date: 20050107
  Serious: Yes (Hospitalization)
  Sender: FDA-Public Use
  Company Number: 200411539FR

PATIENT
  Age: 90 Year
  Sex: Female

DRUGS (8)
  1. LASILIX 40 MG [Suspect]
     Route: 048
     Dates: end: 20040201
  2. ALDACTONE [Suspect]
     Route: 048
     Dates: end: 20040201
  3. ZESTRIL                                 /USA/ [Suspect]
     Route: 048
     Dates: end: 20040201
  4. PHYSIOTENS [Suspect]
     Route: 048
     Dates: end: 20040201
  5. TAHOR [Concomitant]
     Route: 048
  6. NITRIDERM TTS [Concomitant]
     Route: 023
  7. LEVOTHYROXINE SODIUM [Concomitant]
  8. UMULINE [Concomitant]

REACTIONS (8)
  - AMNESIA [None]
  - AORTIC STENOSIS [None]
  - CARDIAC MURMUR [None]
  - HAEMATOMA [None]
  - HYPOTENSION [None]
  - LOSS OF CONSCIOUSNESS [None]
  - OVERDOSE [None]
  - SYNCOPE [None]
